FAERS Safety Report 5371933-7 (Version None)
Quarter: 2007Q2

REPORT INFORMATION
  Report Type: 
  Country: None (occurrence: None)
  Receive Date: 20070627
  Receipt Date: 20070501
  Transmission Date: 20071010
  Serious: Yes (Other)
  Sender: FDA-Public Use
  Company Number: US-PURDUE-USA_2007_0027672

PATIENT
  Sex: Female

DRUGS (6)
  1. OXYCONTIN [Suspect]
     Indication: COMPLEX REGIONAL PAIN SYNDROME
     Dosage: 20 MG, TID
     Dates: start: 19990201
  2. OXYIR [Concomitant]
     Indication: COMPLEX REGIONAL PAIN SYNDROME
     Dosage: 5 MG, TID
     Dates: end: 20000101
  3. OXYCODONE HCL [Concomitant]
     Indication: COMPLEX REGIONAL PAIN SYNDROME
     Dosage: 5 MG, TID
     Dates: start: 19990201, end: 20010615
  4. CALAN - SLOW RELEASE [Concomitant]
     Indication: CARDIAC DISORDER
  5. IMDUR [Concomitant]
     Indication: CARDIAC DISORDER
  6. NITROGLYCERIN [Concomitant]
     Indication: CARDIAC DISORDER

REACTIONS (6)
  - ACTIVITIES OF DAILY LIVING IMPAIRED [None]
  - AMNESIA [None]
  - CARDIAC DISORDER [None]
  - DRUG DEPENDENCE [None]
  - MENTAL DISORDER [None]
  - OVERDOSE [None]
